FAERS Safety Report 15235093 (Version 1)
Quarter: 2018Q3

REPORT INFORMATION
  Report Type: Spontaneous
  Country: JP (occurrence: JP)
  Receive Date: 20180803
  Receipt Date: 20180803
  Transmission Date: 20181010
  Serious: Yes (Death, Life-Threatening, Hospitalization, Other)
  Sender: FDA-Public Use
  Company Number: JP-009507513-1808JPN001269

PATIENT
  Age: 78 Year
  Sex: Female

DRUGS (7)
  1. SORENTMIN (BROTIZOLAM) [Concomitant]
     Dosage: 0.25 MILLIGRAM/DAY
     Dates: start: 20180414
  2. OLMESARTAN MEDOXOMIL. [Concomitant]
     Active Substance: OLMESARTAN MEDOXOMIL
     Dosage: 200 MILLIGRAM/DAY
     Route: 048
     Dates: start: 20180414
  3. AMLODIPINE BESYLATE. [Concomitant]
     Active Substance: AMLODIPINE BESYLATE
     Dosage: 5 MILLIGRAM/DAY
     Route: 048
     Dates: start: 20180414
  4. FEXOFENADINE HYDROCHLORIDE. [Concomitant]
     Active Substance: FEXOFENADINE HYDROCHLORIDE
     Dosage: 120 MILLIGRAM/DAY
     Route: 048
     Dates: start: 20180414
  5. ALENDRONATE SODIUM. [Suspect]
     Active Substance: ALENDRONATE SODIUM
     Dosage: 35 MG, MILLIGRAM PER WEEK
     Route: 048
     Dates: start: 20180709
  6. PRANLUKAST [Concomitant]
     Active Substance: PRANLUKAST
     Dosage: 25.0 MILLIGRAM/DAY
     Route: 048
     Dates: start: 20180414
  7. AMBROXOL HYDROCHLORIDE [Concomitant]
     Active Substance: AMBROXOL HYDROCHLORIDE
     Dosage: 45 MILLIGRAM/DAY
     Route: 048
     Dates: start: 20180414

REACTIONS (4)
  - Abdominal distension [Fatal]
  - Vomiting [Fatal]
  - Renal disorder [Fatal]
  - Pyrexia [Fatal]

NARRATIVE: CASE EVENT DATE: 20180710
